FAERS Safety Report 6355257-7 (Version None)
Quarter: 2009Q3

REPORT INFORMATION
  Report Type: 
  Country: None (occurrence: None)
  Receive Date: 20090914
  Receipt Date: 20090904
  Transmission Date: 20100115
  Serious: No
  Sender: FDA-Public Use
  Company Number: MW-B.I. PHARMACEUTICALS,INC./RIDGEFIELD-2009-BP-10471BP

PATIENT
  Age: 15 Year
  Sex: Male
  Weight: 46 kg

DRUGS (3)
  1. VIRAMUNE [Suspect]
  2. STAVUDINE [Concomitant]
  3. LAMIVUDINE [Concomitant]

REACTIONS (3)
  - CD4 LYMPHOCYTES [None]
  - VIRAL LOAD DECREASED [None]
  - WEIGHT DECREASED [None]
